FAERS Safety Report 4804146-5 (Version None)
Quarter: 2005Q4

REPORT INFORMATION
  Report Type: 
  Country: None (occurrence: None)
  Receive Date: 20051020
  Receipt Date: 20051007
  Transmission Date: 20060501
  Serious: Yes (Hospitalization)
  Sender: FDA-Public Use
  Company Number: DE-ABBOTT-05P-062-0313699-00

PATIENT
  Age: 34 Year
  Sex: Female

DRUGS (9)
  1. KALETRA [Suspect]
     Indication: HIV INFECTION
     Dosage: 400MG/100MG BID
     Route: 048
     Dates: start: 20040501
  2. KALETRA [Suspect]
     Route: 048
     Dates: start: 20040501
  3. VALPROATE SODIUM [Suspect]
     Indication: SIMPLE PARTIAL SEIZURES
     Route: 048
     Dates: start: 20041001
  4. VALPROATE SODIUM [Suspect]
  5. LAMIVUDINE + ZIDOVUDINE [Concomitant]
     Indication: HIV INFECTION
     Route: 048
     Dates: start: 20040501, end: 20041001
  6. VIREAD [Concomitant]
     Indication: HIV INFECTION
     Route: 048
     Dates: start: 20041001, end: 20050201
  7. LEVETIRACETAM [Concomitant]
     Indication: SIMPLE PARTIAL SEIZURES
     Route: 048
     Dates: start: 20041001
  8. LAMOTRIGINE [Concomitant]
     Indication: SIMPLE PARTIAL SEIZURES
     Dates: start: 20041001
  9. CORTISONE ACETATE TAB [Concomitant]
     Indication: SIMPLE PARTIAL SEIZURES
     Dates: start: 20041001

REACTIONS (3)
  - ANAEMIA [None]
  - EPILEPSY [None]
  - LYMPHOPENIA [None]
